FAERS Safety Report 7480358-X (Version None)
Quarter: 2011Q2

REPORT INFORMATION
  Report Type: 
  Country: None (occurrence: None)
  Receive Date: 20110504
  Receipt Date: 20110426
  Transmission Date: 20111010
  Serious: Yes (Hospitalization)
  Sender: FDA-Public Use
  Company Number: 2011030142

PATIENT
  Age: 30 Year
  Sex: Male

DRUGS (10)
  1. DILAUDID [Concomitant]
  2. NEURONTIN [Concomitant]
  3. CLONTDINE (CLONIDINE) [Concomitant]
  4. REMERON [Concomitant]
  5. LORAZEPAM [Concomitant]
  6. TRAZODONE (TRAZODONE) [Concomitant]
  7. ONSOLIS [Suspect]
     Indication: BREAKTHROUGH PAIN
     Dosage: (200 MCG,EVERY 6 HOURS PRN),BU
     Route: 002
     Dates: start: 20110201
  8. BUPIVACAINE (BUPIVACAINE) [Concomitant]
  9. BACLOFEN [Concomitant]
  10. CHEMOTHERAPY [Suspect]

REACTIONS (4)
  - OEDEMA PERIPHERAL [None]
  - PAIN IN EXTREMITY [None]
  - DRUG INEFFECTIVE [None]
  - NEUTROPENIA [None]
